FAERS Safety Report 12382820 (Version 3)
Quarter: 2017Q1

REPORT INFORMATION
  Report Type: Spontaneous
  Country: GR (occurrence: GR)
  Receive Date: 20160518
  Receipt Date: 20170124
  Transmission Date: 20170428
  Serious: Yes (Death)
  Sender: FDA-Public Use
  Company Number: GR-NORTHSTAR HEALTHCARE HOLDINGS-GR-2016NSR001397

PATIENT

DRUGS (1)
  1. PROPRANOLOL HYDROCHLORIDE. [Suspect]
     Active Substance: PROPRANOLOL HYDROCHLORIDE
     Indication: VARICOSE VEIN
     Dosage: UNK

REACTIONS (2)
  - Hepatic cirrhosis [Fatal]
  - Ascites [Fatal]
